FAERS Safety Report 21453229 (Version 1)
Quarter: 2022Q4

REPORT INFORMATION
  Report Type: Spontaneous
  Country: US (occurrence: None)
  Receive Date: 20221012
  Receipt Date: 20221012
  Transmission Date: 20230113
  Serious: No
  Sender: FDA-Public Use
  Company Number: None

PATIENT
  Sex: Male
  Weight: 81.19 kg

DRUGS (9)
  1. TRELSTAR [Suspect]
     Active Substance: TRIPTORELIN PAMOATE
     Indication: Prostate cancer
     Dosage: OTHER QUANTITY : 11.25MG;?OTHER FREQUENCY : Q 3 MONTHS;?
     Dates: start: 201810
  2. ASPIRIN [Concomitant]
     Active Substance: ASPIRIN
  3. DIOVAN [Concomitant]
     Active Substance: VALSARTAN
  4. FLOMAX [Concomitant]
     Active Substance: TAMSULOSIN HYDROCHLORIDE
  5. LANTUS [Concomitant]
     Active Substance: INSULIN GLARGINE
  6. LIPITOR [Concomitant]
     Active Substance: ATORVASTATIN CALCIUM
  7. METOPROLOL [Concomitant]
     Active Substance: METOPROLOL
  8. NOVOLOG [Concomitant]
     Active Substance: INSULIN ASPART
  9. PLAVIX [Concomitant]
     Active Substance: CLOPIDOGREL BISULFATE

REACTIONS (1)
  - Hospitalisation [None]
